FAERS Safety Report 5498740-9 (Version None)
Quarter: 2007Q4

REPORT INFORMATION
  Report Type: 
  Country: None (occurrence: None)
  Receive Date: 20071026
  Receipt Date: 20070712
  Transmission Date: 20080405
  Serious: No
  Sender: FDA-Public Use
  Company Number: A0663683A

PATIENT
  Age: 60 Year
  Sex: Female

DRUGS (10)
  1. ADVAIR DISKUS 100/50 [Suspect]
     Indication: ASTHMA
     Dosage: 1PUFF TWICE PER DAY
     Route: 055
     Dates: start: 20070702
  2. LEVAQUIN [Concomitant]
  3. VICKS VAPOR RUB [Concomitant]
  4. SINGULAIR [Concomitant]
  5. THROAT LOZENGE [Concomitant]
  6. ALLEGRA [Concomitant]
  7. ALLOPURINOL [Concomitant]
  8. AVAPRO [Concomitant]
  9. CLONIDINE [Concomitant]
  10. RANITIDINE HCL [Concomitant]

REACTIONS (3)
  - ILL-DEFINED DISORDER [None]
  - PHARYNGOLARYNGEAL PAIN [None]
  - SPEECH DISORDER [None]
